FAERS Safety Report 5115333-3 (Version None)
Quarter: 2006Q3

REPORT INFORMATION
  Report Type: 
  Country: None (occurrence: None)
  Receive Date: 20060922
  Receipt Date: 20060915
  Transmission Date: 20061208
  Serious: Yes (Hospitalization, Other)
  Sender: FDA-Public Use
  Company Number: 2006-04976

PATIENT
  Age: 11 Year
  Sex: Female

DRUGS (1)
  1. CLONIDINE [Suspect]

REACTIONS (3)
  - GRAND MAL CONVULSION [None]
  - HYPOGLYCAEMIA [None]
  - NEUROLOGICAL SYMPTOM [None]
